FAERS Safety Report 5241916-6 (Version None)
Quarter: 2007Q1

REPORT INFORMATION
  Report Type: 
  Country: None (occurrence: None)
  Receive Date: 20070220
  Receipt Date: 20070213
  Transmission Date: 20070707
  Serious: Yes (Death, Life-Threatening, Hospitalization)
  Sender: FDA-Public Use
  Company Number: US-SHR-US-2007-002793

PATIENT
  Age: 70 Year
  Sex: Male
  Weight: 95 kg

DRUGS (4)
  1. MAGNEVIST [Suspect]
     Dosage: 18 ML, 1 DOSE
     Route: 042
     Dates: start: 20070118, end: 20070118
  2. ATIVAN [Concomitant]
     Indication: PREMEDICATION
     Dosage: 1 MG, 1 DOSE
     Dates: start: 20070118, end: 20070118
  3. INSULIN [Concomitant]
  4. METFORMIN HCL [Concomitant]

REACTIONS (5)
  - ARRHYTHMIA [None]
  - GENERAL PHYSICAL HEALTH DETERIORATION [None]
  - INCREASED UPPER AIRWAY SECRETION [None]
  - LOSS OF CONSCIOUSNESS [None]
  - RESTLESSNESS [None]
